FAERS Safety Report 9691740 (Version 3)
Quarter: 2013Q4

REPORT INFORMATION
  Report Type: Report from Study
  Country: US (occurrence: US)
  Receive Date: 20131115
  Receipt Date: 20131230
  Transmission Date: 20140711
  Serious: Yes (Hospitalization)
  Sender: FDA-Public Use
  Company Number: US-ABBVIE-13P-163-1157187-00

PATIENT
  Age: 31 Year
  Sex: Female
  Weight: 74 kg

DRUGS (9)
  1. HUMIRA [Suspect]
     Indication: CROHN^S DISEASE
     Dates: start: 20131005
  2. HUMIRA [Suspect]
  3. TOPAMAX [Concomitant]
     Indication: MIGRAINE
  4. LATUDA [Concomitant]
     Indication: PRODUCT USED FOR UNKNOWN INDICATION
     Dosage: 40 MG IN AM AND 80 MG IN PM
  5. TEGRETOL [Concomitant]
     Indication: PRODUCT USED FOR UNKNOWN INDICATION
  6. XANAX [Concomitant]
     Indication: BIPOLAR DISORDER
     Dosage: 1 MG QID: USUALLY TAKES QID AND 2 MG AT BEDTIME
  7. ADVAIR [Concomitant]
     Indication: ASTHMA
     Dosage: 250/50 MCG TWICE DAILY
  8. PRO-AIR [Concomitant]
     Indication: ASTHMA
  9. PENTASA [Concomitant]
     Indication: INFLAMMATORY BOWEL DISEASE
     Dates: start: 201211, end: 201301

REACTIONS (6)
  - Pain [Not Recovered/Not Resolved]
  - Diarrhoea [Unknown]
  - Abdominal pain [Unknown]
  - Blood potassium decreased [Unknown]
  - Rash papular [Not Recovered/Not Resolved]
  - Papule [Not Recovered/Not Resolved]
